FAERS Safety Report 11291646 (Version 1)
Quarter: 2015Q3

REPORT INFORMATION
  Report Type: Spontaneous
  Country: US (occurrence: None)
  Receive Date: 20150720
  Receipt Date: 20150720
  Transmission Date: 20151125
  Serious: No
  Sender: FDA-Public Use
  Company Number: None

PATIENT
  Age: 86 Year
  Sex: Male
  Weight: 95.26 kg

DRUGS (2)
  1. WARFARIN [Suspect]
     Active Substance: WARFARIN
  2. TRAMADOL 50MG [Suspect]
     Active Substance: TRAMADOL
     Indication: ARTHRALGIA
     Route: 048
     Dates: start: 20150625, end: 20150713

REACTIONS (3)
  - Adverse drug reaction [None]
  - International normalised ratio increased [None]
  - Metabolic disorder [None]

NARRATIVE: CASE EVENT DATE: 20150717
